FAERS Safety Report 17047156 (Version 1)
Quarter: 2019Q4

REPORT INFORMATION
  Report Type: Spontaneous
  Country: ES (occurrence: ES)
  Receive Date: 20191119
  Receipt Date: 20191119
  Transmission Date: 20200122
  Serious: Yes (Hospitalization, Other)
  Sender: FDA-Public Use
  Company Number: ES-VELOXIS PHARMACEUTICALS-2019VELES-000656

PATIENT
  Age: 48 Year
  Sex: Female

DRUGS (2)
  1. ENVARSUS XR [Suspect]
     Active Substance: TACROLIMUS
     Indication: PROPHYLAXIS AGAINST TRANSPLANT REJECTION
     Dosage: UNK UNK, UNKNOWN FREQ.
     Route: 065
  2. MYCOPHENOLATE MOFETIL. [Suspect]
     Active Substance: MYCOPHENOLATE MOFETIL
     Indication: IMMUNOSUPPRESSION
     Dosage: UNK UNK, UNKNOWN FREQ.
     Route: 065

REACTIONS (29)
  - Wound dehiscence [Unknown]
  - Pancytopenia [Unknown]
  - Diabetes mellitus [Unknown]
  - Anaemia [Unknown]
  - Cardiac tamponade [Unknown]
  - Stenotrophomonas infection [Unknown]
  - Staphylococcal infection [Unknown]
  - Pyrexia [Unknown]
  - Respiratory tract infection [Unknown]
  - Penicillium infection [Unknown]
  - Gastrointestinal disorder [Unknown]
  - Procedural failure [Unknown]
  - Anuria [Unknown]
  - Dyspnoea [Unknown]
  - Bacteraemia [Unknown]
  - Urinary tract infection pseudomonal [Unknown]
  - Subcutaneous abscess [Unknown]
  - Ileus [Unknown]
  - Aspergillus infection [Unknown]
  - Enterobacter infection [Unknown]
  - Enterococcal infection [Unknown]
  - Product use in unapproved indication [Unknown]
  - Intensive care unit acquired weakness [Unknown]
  - Cholecystitis acute [Unknown]
  - Haemorrhage [Unknown]
  - Renal failure [Unknown]
  - Thrombocytopenia [Unknown]
  - Aspiration [Unknown]
  - Hypertension [Unknown]

NARRATIVE: CASE EVENT DATE: 201711
